FAERS Safety Report 16586845 (Version 2)
Quarter: 2019Q4

REPORT INFORMATION
  Report Type: Report from Study
  Country: US (occurrence: US)
  Receive Date: 20190717
  Receipt Date: 20191121
  Transmission Date: 20200122
  Serious: Yes (Hospitalization)
  Sender: FDA-Public Use
  Company Number: US-CELGENEUS-USA-20190704346

PATIENT
  Age: 71 Year
  Sex: Female
  Weight: 73 kg

DRUGS (5)
  1. NIVOLUMAB [Suspect]
     Active Substance: NIVOLUMAB
     Indication: LUNG ADENOCARCINOMA
     Route: 065
     Dates: start: 20190619
  2. ENTINOSTAT [Suspect]
     Active Substance: ENTINOSTAT
     Indication: LUNG ADENOCARCINOMA
     Route: 065
     Dates: start: 20190619
  3. MORPHINE [Concomitant]
     Active Substance: MORPHINE
     Indication: RESPIRATORY DISTRESS
     Dosage: 5 MILLIGRAM
     Route: 065
  4. LASIX [Concomitant]
     Active Substance: FUROSEMIDE
     Indication: POLYURIA
     Route: 041
  5. AZACITIDINE. [Suspect]
     Active Substance: AZACITIDINE
     Indication: LUNG ADENOCARCINOMA
     Route: 065
     Dates: start: 20190619

REACTIONS (1)
  - Pulmonary hypertension [Recovered/Resolved]

NARRATIVE: CASE EVENT DATE: 20190708
